FAERS Safety Report 7222913-8 (Version None)
Quarter: 2011Q1

REPORT INFORMATION
  Report Type: 
  Country: None (occurrence: None)
  Receive Date: 20110106
  Receipt Date: 20110106
  Transmission Date: 20110831
  Serious: Yes (Hospitalization)
  Sender: FDA-Public Use
  Company Number: None

PATIENT
  Age: 88 Year
  Sex: Female
  Weight: 63.9 kg

DRUGS (6)
  1. DILTIAZEM [Concomitant]
  2. COUMADIN [Suspect]
     Indication: ATRIAL FIBRILLATION
     Dosage: 5MG DAILY PO CHRONIC
     Route: 048
  3. LISINOPRIL [Concomitant]
  4. SERTRALINE [Concomitant]
  5. CRESTOR [Concomitant]
  6. DIGOXIN [Concomitant]

REACTIONS (5)
  - DRUG LEVEL ABOVE THERAPEUTIC [None]
  - LACERATION [None]
  - CONTUSION [None]
  - INCORRECT DOSE ADMINISTERED [None]
  - FALL [None]
